FAERS Safety Report 4320649-4 (Version None)
Quarter: 2004Q1

REPORT INFORMATION
  Report Type: 
  Country: None (occurrence: None)
  Receive Date: 20040315
  Receipt Date: 20040226
  Transmission Date: 20041129
  Serious: Yes (Hospitalization, Disabling)
  Sender: FDA-Public Use
  Company Number: 231218

PATIENT
  Age: 50 Year
  Sex: Male
  Weight: 95 kg

DRUGS (4)
  1. NOVOSEVEN [Suspect]
     Indication: CEREBRAL HAEMORRHAGE
     Dosage: 160 UG/KG, SINGLE, INTRAVENOUS
     Route: 042
     Dates: start: 20030801, end: 20030801
  2. LABETALOL HCL [Concomitant]
  3. CAPTOPRIL [Concomitant]
  4. HEPARIN [Concomitant]

REACTIONS (4)
  - HEMIANOPIA [None]
  - ISCHAEMIC STROKE [None]
  - LOSS OF CONSCIOUSNESS [None]
  - PARESIS [None]
